FAERS Safety Report 20738311 (Version 1)
Quarter: 2022Q2

REPORT INFORMATION
  Report Type: Spontaneous
  Country: US (occurrence: US)
  Receive Date: 20220422
  Receipt Date: 20220422
  Transmission Date: 20220721
  Serious: Yes (Other)
  Sender: FDA-Public Use
  Company Number: US-SUN PHARMACEUTICAL INDUSTRIES LTD-2022R1-333271

PATIENT
  Sex: Female
  Weight: 70.76 kg

DRUGS (4)
  1. METOPROLOL [Suspect]
     Active Substance: METOPROLOL
     Indication: Product used for unknown indication
     Dosage: 25 MILLIGRAM, HALF TABLET TWICE A DAY
     Route: 065
  2. Covid vaccine [Concomitant]
     Indication: Product used for unknown indication
     Dosage: UNK
     Route: 065
  3. TAMOXIFEN [Concomitant]
     Active Substance: TAMOXIFEN
     Indication: Neoplasm malignant
     Dosage: 20 MILLIGRAM, QD
     Route: 065
  4. PRADAXA [Concomitant]
     Active Substance: DABIGATRAN ETEXILATE MESYLATE
     Indication: Product used for unknown indication
     Dosage: 150 MG TWICE A DAY
     Route: 065

REACTIONS (1)
  - Atrial fibrillation [Unknown]
